FAERS Safety Report 23482039 (Version 1)
Quarter: 2024Q1

REPORT INFORMATION
  Report Type: Spontaneous
  Country: IN (occurrence: IN)
  Receive Date: 20240205
  Receipt Date: 20240205
  Transmission Date: 20240409
  Serious: Yes (Other)
  Sender: FDA-Public Use
  Company Number: IN-SUN PHARMACEUTICAL INDUSTRIES LTD-2024R1-429592

PATIENT
  Age: 47 Year
  Sex: Male

DRUGS (3)
  1. DEXAMETHASONE [Suspect]
     Active Substance: DEXAMETHASONE
     Indication: Respiratory failure
     Dosage: 8 MILLIGRAM, BID
     Route: 065
  2. CEFTRIAXONE [Suspect]
     Active Substance: CEFTRIAXONE\CEFTRIAXONE SODIUM
     Indication: Respiratory failure
     Dosage: UNK
     Route: 042
  3. REMDESIVIR [Suspect]
     Active Substance: REMDESIVIR
     Indication: Respiratory failure
     Dosage: UNK
     Route: 042

REACTIONS (1)
  - Disease recurrence [Unknown]
